FAERS Safety Report 7937270-9 (Version None)
Quarter: 2011Q4

REPORT INFORMATION
  Report Type: 
  Country: None (occurrence: None)
  Receive Date: 20111123
  Receipt Date: 20111116
  Transmission Date: 20120403
  Serious: Yes (Life-Threatening, Hospitalization, Other)
  Sender: FDA-Public Use
  Company Number: JP-GENZYME-THYM-1002662

PATIENT
  Sex: Female
  Weight: 38 kg

DRUGS (39)
  1. METHYLPREDNISOLONE SODIUM SUCCINATE [Concomitant]
     Indication: ALLERGY PROPHYLAXIS
     Dosage: UNK
     Dates: start: 20110517, end: 20110518
  2. TACROLIMUS [Concomitant]
     Dosage: UNK
     Dates: start: 20110617, end: 20110705
  3. ACYCLOVIR [Concomitant]
     Indication: INFECTION PROPHYLAXIS
     Dosage: UNK
     Dates: start: 20110107, end: 20110705
  4. PLATELETS, CONCENTRATED [Concomitant]
     Indication: ADULT T-CELL LYMPHOMA/LEUKAEMIA
     Dosage: UNK
     Dates: start: 20110524, end: 20110704
  5. THROMBOMODULIN ALFA [Concomitant]
     Indication: PROPHYLAXIS
     Dosage: UNK
     Dates: start: 20110525, end: 20110607
  6. DORIPENEM HYDRATE [Concomitant]
     Indication: INFECTION PROPHYLAXIS
     Dosage: UNK
     Dates: start: 20110528, end: 20110704
  7. CLEMASTINE FUMARATE [Concomitant]
     Indication: ADULT T-CELL LYMPHOMA/LEUKAEMIA
     Dosage: UNK
     Dates: start: 20110517, end: 20110518
  8. HYDROCORTISONE SODIUM PHOSPHATE [Concomitant]
     Indication: ALLERGY PROPHYLAXIS
     Dosage: UNK
     Dates: start: 20110509, end: 20110519
  9. CARMELLOSE SODIUM [Concomitant]
     Indication: PROPHYLAXIS
     Dosage: UNK
     Dates: start: 20110512, end: 20110620
  10. DOXORUBICIN HCL [Concomitant]
     Indication: ADULT T-CELL LYMPHOMA/LEUKAEMIA
     Dosage: UNK
     Dates: start: 20110620, end: 20110622
  11. ZOLEDRONIC ACID [Concomitant]
     Indication: HYPERCALCAEMIA
     Dosage: UNK
     Dates: start: 20110624, end: 20110627
  12. LOXOPROFEN SODIUM [Concomitant]
     Indication: ADULT T-CELL LYMPHOMA/LEUKAEMIA
     Dosage: UNK
     Dates: start: 20110517, end: 20110518
  13. METHYLPREDNISOLONE SODIUM SUCCINATE [Concomitant]
     Indication: ADULT T-CELL LYMPHOMA/LEUKAEMIA
     Dosage: UNK
     Dates: start: 20110624, end: 20110627
  14. GRANISETRON HCL [Concomitant]
     Indication: PROPHYLAXIS
     Dosage: UNK
     Dates: start: 20110513, end: 20110517
  15. ACYCLOVIR [Concomitant]
     Dosage: UNK
     Dates: start: 20110526, end: 20110608
  16. URSODIOL [Concomitant]
     Indication: PROPHYLAXIS
     Dosage: UNK
     Dates: start: 20110512, end: 20110705
  17. ITRACONAZOLE [Concomitant]
     Indication: INFECTION PROPHYLAXIS
     Dosage: UNK
     Dates: start: 20110512, end: 20110526
  18. LANSOPRAZOLE [Concomitant]
     Indication: PROPHYLAXIS
     Dosage: UNK
     Dates: start: 20110522, end: 20110705
  19. VINCRISTINE SULFATE [Concomitant]
     Indication: ADULT T-CELL LYMPHOMA/LEUKAEMIA
     Dosage: UNK
     Dates: start: 20110622, end: 20110622
  20. CYCLOPHOSPHAMIDE [Concomitant]
     Indication: ADULT T-CELL LYMPHOMA/LEUKAEMIA
     Dosage: UNK
     Dates: start: 20110622, end: 20110622
  21. GRANISETRON HCL [Concomitant]
     Indication: PROPHYLAXIS OF NAUSEA AND VOMITING
     Dosage: UNK
     Dates: start: 20110622, end: 20110622
  22. ALLOPURINOL [Concomitant]
     Indication: INFECTION PROPHYLAXIS
     Dosage: UNK
     Dates: start: 20110512, end: 20110705
  23. POVIDONE IODINE [Concomitant]
     Indication: INFECTION PROPHYLAXIS
     Dosage: UNK
     Dates: start: 20110107, end: 20110705
  24. AMPHOTERICIN B [Concomitant]
     Indication: INFECTION PROPHYLAXIS
     Dosage: UNK
     Dates: start: 20110608, end: 20110627
  25. SULFAMETHOPRIM [Concomitant]
     Indication: INFECTION PROPHYLAXIS
     Dosage: UNK
     Dates: start: 20110610, end: 20110629
  26. THYMOGLOBULIN [Suspect]
     Indication: BONE MARROW CONDITIONING REGIMEN
     Dosage: 100 MG, QD
     Route: 042
     Dates: start: 20110517, end: 20110518
  27. HEPARIN [Concomitant]
     Indication: THROMBOSIS PROPHYLAXIS
     Dosage: UNK
     Dates: start: 20110512, end: 20110521
  28. MEROPENEM [Concomitant]
     Indication: INFECTION PROPHYLAXIS
     Dosage: UNK
     Dates: start: 20110517, end: 20110519
  29. LEVOFLOXACIN [Concomitant]
     Indication: INFECTION PROPHYLAXIS
     Dosage: UNK
     Dates: start: 20110502, end: 20110626
  30. RED BLOOD CELLS, CONCENTRATED [Concomitant]
     Indication: ADULT T-CELL LYMPHOMA/LEUKAEMIA
     Dosage: UNK
     Dates: start: 20110523, end: 20110704
  31. TACROLIMUS [Concomitant]
     Indication: PROPHYLAXIS AGAINST TRANSPLANT REJECTION
     Dosage: UNK
     Dates: start: 20110518, end: 20110627
  32. MAGNESIUM SULFATE [Concomitant]
     Indication: CONSTIPATION PROPHYLAXIS
     Dosage: UNK
     Dates: start: 20110512, end: 20110705
  33. METHOTREXATE [Concomitant]
     Indication: PROPHYLAXIS AGAINST TRANSPLANT REJECTION
     Dosage: UNK
     Dates: start: 20110520, end: 20110525
  34. THROMBOMODULIN ALFA [Concomitant]
     Dosage: UNK
     Dates: start: 20110624, end: 20110701
  35. CEFTAZIDIME [Concomitant]
     Indication: INFECTION PROPHYLAXIS
     Dosage: UNK
     Dates: start: 20110527, end: 20110527
  36. MICAFUNGIN SODIUM [Concomitant]
     Indication: INFECTION PROPHYLAXIS
     Dosage: UNK
     Dates: start: 20110527, end: 20110607
  37. FLUDARABINE PHOSPHATE [Concomitant]
     Indication: BONE MARROW CONDITIONING REGIMEN
     Dosage: UNK
     Dates: start: 20110513, end: 20110517
  38. REBAMIPIDE [Concomitant]
     Indication: PROPHYLAXIS
     Dosage: UNK
     Dates: start: 20110107, end: 20110629
  39. FAMOTIDINE [Concomitant]
     Indication: PROPHYLAXIS
     Dosage: UNK
     Dates: start: 20110107, end: 20110705

REACTIONS (16)
  - HEPATIC FUNCTION ABNORMAL [None]
  - DIARRHOEA [None]
  - CHEST DISCOMFORT [None]
  - NAUSEA [None]
  - INSOMNIA [None]
  - PLEURAL EFFUSION [None]
  - CYTOMEGALOVIRUS INFECTION [None]
  - WHITE BLOOD CELL COUNT DECREASED [None]
  - STOMATITIS [None]
  - RASH [None]
  - RENAL IMPAIRMENT [None]
  - GASTROINTESTINAL HYPOMOTILITY [None]
  - PULMONARY INFARCTION [None]
  - PRURITUS [None]
  - ANTITHROMBIN III DEFICIENCY [None]
  - HYPOXIA [None]
